FAERS Safety Report 23331346 (Version 1)
Quarter: 2023Q4

REPORT INFORMATION
  Report Type: Report from Study
  Country: CA (occurrence: CA)
  Receive Date: 20231222
  Receipt Date: 20231222
  Transmission Date: 20240109
  Serious: Yes (Hospitalization, Other)
  Sender: FDA-Public Use
  Company Number: CA-JNJFOC-20230751800

PATIENT
  Age: 41 Year
  Sex: Male
  Weight: 66 kg

DRUGS (1)
  1. REMICADE [Suspect]
     Active Substance: INFLIXIMAB
     Indication: Sarcoidosis
     Dosage: ON 27-JUN-2023, THE PATIENT RECEIVED 3RD LAST REMICADE INFUSION.?EXPIRY DATE: NOV-2025?V1: LAST REMI
     Route: 041
     Dates: start: 20230516

REACTIONS (11)
  - Pneumonia [Recovering/Resolving]
  - Asthenia [Unknown]
  - Dysphagia [Unknown]
  - Cardiac sarcoidosis [Unknown]
  - Dyspnoea [Unknown]
  - Oxygen saturation decreased [Unknown]
  - Dyspnoea exertional [Recovering/Resolving]
  - Fatigue [Unknown]
  - Productive cough [Unknown]
  - Oral candidiasis [Unknown]
  - Off label use [Unknown]

NARRATIVE: CASE EVENT DATE: 20230101
